FAERS Safety Report 8988654 (Version 1)
Quarter: 2012Q4

REPORT INFORMATION
  Report Type: 
  Country: FR (occurrence: FR)
  Receive Date: 20121227
  Receipt Date: 20121227
  Transmission Date: 20130627
  Serious: Yes (Hospitalization)
  Sender: FDA-Public Use
  Company Number: PHHY2012FR093158

PATIENT
  Age: 70 Year
  Sex: Female

DRUGS (4)
  1. VOLTARENE [Suspect]
     Indication: OSTEOARTHRITIS
     Route: 048
     Dates: start: 20120825, end: 20120826
  2. LEXOMIL [Concomitant]
  3. HYTACAND [Concomitant]
  4. EZETROL [Concomitant]

REACTIONS (2)
  - Intestinal mass [Unknown]
  - Rectal haemorrhage [Recovered/Resolved]
